FAERS Safety Report 25308806 (Version 1)
Quarter: 2025Q2

REPORT INFORMATION
  Report Type: Spontaneous
  Country: US (occurrence: US)
  Receive Date: 20250513
  Receipt Date: 20250513
  Transmission Date: 20250716
  Serious: No
  Sender: SANOFI AVENTIS
  Company Number: US-SA-2025SA134867

PATIENT
  Age: 48 Year
  Sex: Female

DRUGS (8)
  1. DUPIXENT [Suspect]
     Active Substance: DUPILUMAB
     Indication: Dermatitis atopic
     Route: 058
     Dates: end: 20250508
  2. HYDROCODONE [Concomitant]
     Active Substance: HYDROCODONE
  3. ALLEGRA [Concomitant]
     Active Substance: FEXOFENADINE HYDROCHLORIDE
  4. ALPRAZOLAM [Concomitant]
     Active Substance: ALPRAZOLAM
  5. MUPIROCIN [Concomitant]
     Active Substance: MUPIROCIN
  6. CLOBETASOL [Concomitant]
     Active Substance: CLOBETASOL
  7. BETAMETHASONE [Concomitant]
     Active Substance: BETAMETHASONE
  8. EBGLYSS [Concomitant]
     Active Substance: LEBRIKIZUMAB-LBKZ

REACTIONS (2)
  - Eye disorder [Unknown]
  - Rebound atopic dermatitis [Unknown]

NARRATIVE: CASE EVENT DATE: 20250501
